FAERS Safety Report 6212365-9 (Version None)
Quarter: 2009Q2

REPORT INFORMATION
  Report Type: 
  Country: None (occurrence: None)
  Receive Date: 20090529
  Receipt Date: 20090514
  Transmission Date: 20091009
  Serious: Yes (Hospitalization)
  Sender: FDA-Public Use
  Company Number: CQT2-2009-00012

PATIENT
  Age: 50 Year
  Sex: Male
  Weight: 80 kg

DRUGS (4)
  1. ANAGRELIDE HCL [Suspect]
     Indication: ESSENTIAL THROMBOCYTHAEMIA
     Dosage: 1 MG, 1X/DAY:QD, ORAL; 1 MG, 1X/DAY:QD, ORAL
     Route: 048
     Dates: start: 20080626, end: 20090101
  2. ANAGRELIDE HCL [Suspect]
     Indication: ESSENTIAL THROMBOCYTHAEMIA
     Dosage: 1 MG, 1X/DAY:QD, ORAL; 1 MG, 1X/DAY:QD, ORAL
     Route: 048
     Dates: start: 20090101
  3. ACETYLSALICYLIC ACID SRT [Suspect]
     Indication: ESSENTIAL THROMBOCYTHAEMIA
     Dosage: 75 MG, 1X/DAY:QD, ORAL
     Route: 048
     Dates: start: 20070401, end: 20090101
  4. HYDROXYUREA [Suspect]
     Indication: ESSENTIAL THROMBOCYTHAEMIA
     Dosage: 1500 MG, 1X/DAY:QD, ORAL
     Route: 048
     Dates: start: 20070523, end: 20080625

REACTIONS (2)
  - ANEURYSM RUPTURED [None]
  - ESSENTIAL THROMBOCYTHAEMIA [None]
